FAERS Safety Report 20995674 (Version 1)
Quarter: 2022Q2

REPORT INFORMATION
  Report Type: Spontaneous
  Country: US (occurrence: US)
  Receive Date: 20220623
  Receipt Date: 20220623
  Transmission Date: 20220721
  Serious: No
  Sender: FDA-Public Use
  Company Number: US-PURDUE PHARMA-USA-2022-0291951

PATIENT
  Age: 47 Year
  Sex: Female

DRUGS (13)
  1. OXYCODONE HYDROCHLORIDE [Suspect]
     Active Substance: OXYCODONE HYDROCHLORIDE
     Indication: Arthralgia
     Dosage: 10 MG, DAILY
     Route: 048
     Dates: start: 20220307
  2. OXYCODONE HYDROCHLORIDE [Suspect]
     Active Substance: OXYCODONE HYDROCHLORIDE
     Indication: Back pain
  3. BUPRENORPHINE [Concomitant]
     Active Substance: BUPRENORPHINE
     Indication: Arthralgia
     Dosage: 20 MG, UNK
     Route: 062
     Dates: start: 202109
  4. BUPRENORPHINE [Concomitant]
     Active Substance: BUPRENORPHINE
     Indication: Back pain
  5. LAMOTRIGINE [Concomitant]
     Active Substance: LAMOTRIGINE
     Indication: Affective disorder
     Dosage: 100 MG, QID
     Route: 048
     Dates: start: 2018
  6. DIAZEPAM [Concomitant]
     Active Substance: DIAZEPAM
     Indication: Anxiety
     Dosage: 5 MG, TID
     Route: 048
     Dates: start: 2017
  7. PROPRANOLOL [Concomitant]
     Active Substance: PROPRANOLOL HYDROCHLORIDE
     Indication: Blood pressure measurement
     Dosage: 20 MG, TID
     Route: 048
     Dates: start: 2017
  8. DEXTROAMPHETAMINE                  /00016601/ [Concomitant]
     Indication: Attention deficit hyperactivity disorder
     Dosage: 20 MG, TID
     Route: 048
     Dates: start: 2017
  9. IBUPROFEN [Concomitant]
     Active Substance: IBUPROFEN
     Indication: Arthralgia
     Dosage: 600 MG, PRN
     Route: 048
     Dates: start: 2020
  10. IBUPROFEN [Concomitant]
     Active Substance: IBUPROFEN
     Indication: Back pain
  11. IBUPROFEN [Concomitant]
     Active Substance: IBUPROFEN
     Indication: Inflammation
  12. AMLODIPINE [Concomitant]
     Active Substance: AMLODIPINE BESYLATE
     Indication: Blood pressure measurement
     Dosage: 5 MG, DAILY
     Route: 048
     Dates: start: 2017
  13. PROMETHAZINE [Concomitant]
     Active Substance: PROMETHAZINE HYDROCHLORIDE
     Indication: Nausea
     Dosage: 12.5 MG, BID
     Route: 048
     Dates: start: 2019

REACTIONS (3)
  - Headache [Not Recovered/Not Resolved]
  - Drug ineffective [Not Recovered/Not Resolved]
  - Product availability issue [Unknown]

NARRATIVE: CASE EVENT DATE: 20220307
